FAERS Safety Report 9548693 (Version 1)
Quarter: 2013Q2

REPORT INFORMATION
  Report Type: Spontaneous
  Country: US (occurrence: None)
  Receive Date: 20130628
  Receipt Date: 20130628
  Transmission Date: 20140414
  Serious: Yes (Other)
  Sender: FDA-Public Use
  Company Number: 421193

PATIENT
  Sex: 0

DRUGS (1)
  1. VANCOMYCIN HYDROCHLORIDE [Suspect]
     Dosage: 1.25G IN 250ML 0.9% NACL
     Dates: start: 2009, end: 2009

REACTIONS (1)
  - Renal failure acute [None]
